FAERS Safety Report 5851601-5 (Version None)
Quarter: 2008Q3

REPORT INFORMATION
  Report Type: 
  Country: None (occurrence: None)
  Receive Date: 20080820
  Receipt Date: 20080806
  Transmission Date: 20090109
  Serious: Yes (Other)
  Sender: FDA-Public Use
  Company Number: GB-ELI_LILLY_AND_COMPANY-GB200807000314

PATIENT
  Age: 59 Year

DRUGS (5)
  1. BYETTA [Suspect]
     Indication: DIABETES MELLITUS
     Dosage: UNK, UNKNOWN
     Route: 065
     Dates: start: 20071201, end: 20080507
  2. LISINOPRIL [Concomitant]
     Dosage: UNK, UNKNOWN
     Route: 065
  3. SIMVASTATIN [Concomitant]
     Dosage: UNK, UNKNOWN
     Route: 065
  4. LANSOPRAZOLE [Concomitant]
     Dosage: UNK, UNKNOWN
     Route: 065
  5. PROCHLORPERAZINE [Concomitant]
     Dosage: UNK, UNKNOWN
     Route: 065

REACTIONS (3)
  - GLOMERULONEPHRITIS MEMBRANOUS [None]
  - MALAISE [None]
  - SWELLING [None]
